FAERS Safety Report 9177315 (Version 1)
Quarter: 2013Q1

REPORT INFORMATION
  Report Type: Spontaneous
  Country: NL (occurrence: NL)
  Receive Date: 20130321
  Receipt Date: 20130321
  Transmission Date: 20140127
  Serious: Yes (Hospitalization)
  Sender: FDA-Public Use
  Company Number: PHHY2013NL027473

PATIENT
  Sex: Male
  Weight: 33 kg

DRUGS (2)
  1. METHYLPHENIDATE [Suspect]
     Indication: ATTENTION DEFICIT/HYPERACTIVITY DISORDER
     Dosage: 2 DF (10 MG), UNK
     Dates: start: 20090201
  2. METHYLPHENIDATE [Suspect]
     Dosage: UNK (DOSE REDUCED)

REACTIONS (1)
  - Paralysis [Recovered/Resolved]
